FAERS Safety Report 13814680 (Version 1)
Quarter: 2017Q3

REPORT INFORMATION
  Report Type: Report from Study
  Country: US (occurrence: US)
  Receive Date: 20170731
  Receipt Date: 20170731
  Transmission Date: 20171127
  Serious: No
  Sender: FDA-Public Use
  Company Number: US-AMGEN-USASL2017112671

PATIENT
  Sex: Male

DRUGS (1)
  1. ENBREL [Suspect]
     Active Substance: ETANERCEPT
     Indication: ANKYLOSING SPONDYLITIS
     Dosage: 50 MG, QWK
     Route: 065

REACTIONS (7)
  - Injection site swelling [Unknown]
  - Injection site erythema [Unknown]
  - Injection site warmth [Unknown]
  - Injection site pruritus [Unknown]
  - Injection site bruising [Unknown]
  - Injection site urticaria [Unknown]
  - Injection site discolouration [Unknown]
